FAERS Safety Report 18351377 (Version 2)
Quarter: 2020Q4

REPORT INFORMATION
  Report Type: Other
  Country: US (occurrence: US)
  Receive Date: 20201006
  Receipt Date: 20201104
  Transmission Date: 20210114
  Serious: Yes (Hospitalization, Other)
  Sender: FDA-Public Use
  Company Number: US-ROCHE-2689135

PATIENT
  Sex: Male

DRUGS (2)
  1. ESBRIET [Suspect]
     Active Substance: PIRFENIDONE
     Indication: CHRONIC KIDNEY DISEASE
     Dosage: TAKE 3 CAPSULE(S) BY MOUTH 3 TIMES A DAY WITH FOOD
     Route: 048
  2. ESBRIET [Suspect]
     Active Substance: PIRFENIDONE
     Indication: IDIOPATHIC PULMONARY FIBROSIS
     Dosage: TAKE 3 CAPSULE(S) BY MOUTH 3 TIMES A DAY WITH FOOD
     Route: 048

REACTIONS (4)
  - Vesicoureteric reflux [Unknown]
  - Urinary retention [Unknown]
  - Acute kidney injury [Unknown]
  - Prostatic obstruction [Unknown]
